FAERS Safety Report 13896612 (Version 1)
Quarter: 2017Q3

REPORT INFORMATION
  Report Type: Spontaneous
  Country: US (occurrence: US)
  Receive Date: 20170822
  Receipt Date: 20170822
  Transmission Date: 20171127
  Serious: Yes (Life-Threatening)
  Sender: FDA-Public Use
  Company Number: None

PATIENT
  Age: 60 Year
  Sex: Female
  Weight: 72 kg

DRUGS (3)
  1. HYDROCORTISONE 5 MG TABLET [Suspect]
     Active Substance: HYDROCORTISONE
     Indication: CORTISOL DECREASED
     Dosage: ?          QUANTITY:3 TABLET(S);?
     Route: 048
     Dates: start: 20170725, end: 20170809
  2. SERTRALINE [Concomitant]
     Active Substance: SERTRALINE HYDROCHLORIDE
  3. VITAMIN D [Concomitant]
     Active Substance: CHOLECALCIFEROL

REACTIONS (4)
  - Condition aggravated [None]
  - Product substitution issue [None]
  - Hyperpituitarism [None]
  - Drug ineffective [None]

NARRATIVE: CASE EVENT DATE: 20170809
